FAERS Safety Report 17135612 (Version 5)
Quarter: 2020Q1

REPORT INFORMATION
  Report Type: Spontaneous
  Country: SE (occurrence: SE)
  Receive Date: 20191210
  Receipt Date: 20200218
  Transmission Date: 20200409
  Serious: Yes (Life-Threatening, Hospitalization, Other)
  Sender: FDA-Public Use
  Company Number: SE-009507513-1912SWE002175

PATIENT
  Age: 75 Year
  Sex: Male
  Weight: 77 kg

DRUGS (4)
  1. ALIMTA [Concomitant]
     Active Substance: PEMETREXED DISODIUM
     Indication: NON-SMALL CELL LUNG CANCER STAGE IV
     Dosage: UNK
     Dates: start: 20190805, end: 20191014
  2. KEYTRUDA [Suspect]
     Active Substance: PEMBROLIZUMAB
     Indication: NON-SMALL CELL LUNG CANCER STAGE IV
     Dosage: 200 MILLIGRAM, EVERY 3RD WEEK
     Dates: start: 20190805, end: 20191014
  3. ALIMTA [Concomitant]
     Active Substance: PEMETREXED DISODIUM
     Dosage: UNK
     Dates: start: 20191108
  4. CARBOPLATIN. [Concomitant]
     Active Substance: CARBOPLATIN
     Indication: NON-SMALL CELL LUNG CANCER STAGE IV
     Dosage: UNK
     Dates: start: 20190805, end: 20191014

REACTIONS (6)
  - Cardiovascular disorder [Unknown]
  - Blood creatinine increased [Unknown]
  - Inappropriate schedule of product administration [Unknown]
  - Haemophagocytic lymphohistiocytosis [Recovered/Resolved with Sequelae]
  - Haematuria [Recovered/Resolved]
  - Haemoglobin abnormal [Recovered/Resolved]

NARRATIVE: CASE EVENT DATE: 201911
